FAERS Safety Report 5252106-5 (Version None)
Quarter: 2007Q1

REPORT INFORMATION
  Report Type: 
  Country: None (occurrence: None)
  Receive Date: 20070220
  Receipt Date: 20070202
  Transmission Date: 20070707
  Serious: Yes (Hospitalization)
  Sender: FDA-Public Use
  Company Number: THYM-11298

PATIENT
  Sex: Female

DRUGS (13)
  1. THYMOGLOBULIN [Suspect]
     Indication: RENAL TRANSPLANT
     Dosage: 75 MG QD IV
     Route: 042
     Dates: start: 20060202, end: 20060202
  2. THYMOGLOBULIN [Suspect]
     Indication: RENAL TRANSPLANT
     Dates: start: 20060203, end: 20060210
  3. TACROLIMUS [Suspect]
     Indication: IMMUNOSUPPRESSION
     Dosage: 0.1 MG QD PO
     Route: 048
  4. TACROLIMUS [Suspect]
     Indication: IMMUNOSUPPRESSION
     Dates: end: 20060511
  5. SIROLIMUS [Suspect]
     Indication: IMMUNOSUPPRESSION
     Dosage: 8 MG QD PO
     Route: 048
     Dates: start: 20060511, end: 20060511
  6. SIROLIMUS [Suspect]
     Indication: IMMUNOSUPPRESSION
     Dates: start: 20060512
  7. BACTRIM [Concomitant]
  8. VALACYCLOVIR HCL [Concomitant]
  9. HEPARIN [Concomitant]
  10. ASPIRIN [Concomitant]
  11. CELLCEPT [Concomitant]
  12. SOLU-MEDROL [Concomitant]
  13. STEROIDS (PREDNISONE OR PREDNISOLONE) [Concomitant]

REACTIONS (2)
  - AGRANULOCYTOSIS [None]
  - PYELONEPHRITIS [None]
